FAERS Safety Report 22303298 (Version 5)
Quarter: 2024Q3

REPORT INFORMATION
  Report Type: Spontaneous
  Country: CZ (occurrence: CZ)
  Receive Date: 20230510
  Receipt Date: 20240823
  Transmission Date: 20241016
  Serious: Yes (Other)
  Sender: MYLAN
  Company Number: CZ-MYLANLABS-2023M1048353

PATIENT
  Age: 55 Year
  Sex: Female
  Weight: 99 kg

DRUGS (10)
  1. CYCLOSPORINE [Suspect]
     Active Substance: CYCLOSPORINE
     Indication: Dermatitis atopic
     Dosage: 400 MILLIGRAM, QD
     Route: 065
     Dates: start: 201811
  2. CYCLOSPORINE [Suspect]
     Active Substance: CYCLOSPORINE
     Dosage: 400 MILLIGRAM, QD,(DAILY)
     Route: 048
     Dates: start: 2018, end: 2019
  3. CYCLOSPORINE [Suspect]
     Active Substance: CYCLOSPORINE
     Dosage: 300 MILLIGRAM, QD,(DAILY)
     Route: 065
     Dates: start: 202012, end: 2022
  4. CYCLOSPORINE [Suspect]
     Active Substance: CYCLOSPORINE
     Dosage: 200 MILLIGRAM, QD
     Route: 065
  5. DUPILUMAB [Suspect]
     Active Substance: DUPILUMAB
     Indication: Dermatitis atopic
     Dosage: UNK,(TERMINATED IN THE 16TH WEEK)
     Route: 065
     Dates: start: 201910
  6. METHOTREXATE [Suspect]
     Active Substance: METHOTREXATE
     Indication: Dermatitis atopic
     Dosage: 20 MG, QW,(INCREASING THE DOSE TO 20 MG PER WEEK)
     Route: 065
     Dates: start: 202002
  7. PERINDOPRIL [Concomitant]
     Active Substance: PERINDOPRIL
     Indication: Hypertension
     Dosage: UNK
     Route: 065
  8. TRAZODONE [Concomitant]
     Active Substance: TRAZODONE HYDROCHLORIDE
     Indication: Depression
     Dosage: UNK
     Route: 065
  9. LEVOCETIRIZINE [Concomitant]
     Active Substance: LEVOCETIRIZINE
     Indication: Antiallergic therapy
     Dosage: UNK
     Route: 065
  10. BISULEPIN [Concomitant]
     Active Substance: BISULEPIN
     Indication: Antiallergic therapy
     Dosage: UNK
     Route: 065

REACTIONS (4)
  - Nephropathy toxic [Recovered/Resolved]
  - Blood pressure increased [Recovered/Resolved]
  - Dermatitis atopic [Recovered/Resolved]
  - Pruritus [Recovered/Resolved]
